FAERS Safety Report 6407339-9 (Version None)
Quarter: 2009Q4

REPORT INFORMATION
  Report Type: 
  Country: None (occurrence: None)
  Receive Date: 20091020
  Receipt Date: 20091005
  Transmission Date: 20100525
  Serious: Yes (Other)
  Sender: FDA-Public Use
  Company Number: US-JNJFOC-20091001934

PATIENT
  Age: 9 Year
  Sex: Male
  Weight: 52.16 kg

DRUGS (3)
  1. CHILDREN'S TYLENOL PLUS COUGH + SORE THROAT CHERRY [Suspect]
     Indication: NASOPHARYNGITIS
     Dosage: TODAY
     Route: 048
  2. NOVOLOG [Concomitant]
     Indication: TYPE 1 DIABETES MELLITUS
     Route: 050
  3. LANTUS [Concomitant]
     Indication: TYPE 1 DIABETES MELLITUS
     Route: 050

REACTIONS (1)
  - BLOOD GLUCOSE INCREASED [None]
